FAERS Safety Report 21408191 (Version 1)
Quarter: 2022Q4

REPORT INFORMATION
  Report Type: Spontaneous
  Country: US (occurrence: US)
  Receive Date: 20221004
  Receipt Date: 20221004
  Transmission Date: 20230112
  Serious: No
  Sender: FDA-Public Use
  Company Number: US-ALLERGAN-2202792US

PATIENT

DRUGS (1)
  1. FML [Suspect]
     Active Substance: FLUOROMETHOLONE
     Dosage: UNK
     Dates: start: 20211108, end: 202201

REACTIONS (2)
  - Product dose omission issue [Unknown]
  - Product packaging quantity issue [Unknown]

NARRATIVE: CASE EVENT DATE: 20220101
